FAERS Safety Report 5125851-X (Version None)
Quarter: 2006Q3

REPORT INFORMATION
  Report Type: 
  Country: None (occurrence: None)
  Receive Date: 20060818
  Receipt Date: 20060601
  Transmission Date: 20061208
  Serious: No
  Sender: FDA-Public Use
  Company Number: SUS1-2006-00577

PATIENT
  Age: 80 Year
  Sex: Male

DRUGS (1)
  1. FOSRENOL [Suspect]
     Indication: HYPERPHOSPHATAEMIA
     Dosage: 1000 MG, 3X/DAY:TID, WITH MEALS
     Dates: start: 20060517

REACTIONS (1)
  - RECTAL DISCHARGE [None]
